FAERS Safety Report 9146459 (Version 6)
Quarter: 2013Q4

REPORT INFORMATION
  Report Type: Report from Study
  Country: US (occurrence: US)
  Receive Date: 20130307
  Receipt Date: 20131018
  Transmission Date: 20140711
  Serious: Yes (Death, Hospitalization, Other)
  Sender: FDA-Public Use
  Company Number: US-ACTELION-A-NJ2013-80129

PATIENT
  Age: 69 Year
  Sex: Female

DRUGS (4)
  1. VELETRI [Suspect]
     Indication: PULMONARY ARTERIAL HYPERTENSION
     Dosage: 14 NG/KG, PER MIN
     Route: 042
     Dates: start: 20100915, end: 20131004
  2. VELETRI [Suspect]
     Dosage: 38 NG/KG, PER MIN
     Route: 041
     Dates: start: 20100831
  3. SILDENAFIL [Concomitant]
  4. OXYGEN [Concomitant]

REACTIONS (7)
  - Death [Fatal]
  - Chronic obstructive pulmonary disease [Unknown]
  - Dyspnoea [Unknown]
  - Terminal state [Unknown]
  - Confusional state [Unknown]
  - Disorientation [Unknown]
  - Device deployment issue [Unknown]
